FAERS Safety Report 4969310-3 (Version None)
Quarter: 2006Q2

REPORT INFORMATION
  Report Type: 
  Country: None (occurrence: None)
  Receive Date: 20060411
  Receipt Date: 20060330
  Transmission Date: 20061013
  Serious: Yes (Hospitalization)
  Sender: FDA-Public Use
  Company Number: US-ROCHE-442320

PATIENT
  Age: 48 Year
  Sex: Male

DRUGS (6)
  1. ENFUVIRTIDE [Suspect]
     Indication: HIV INFECTION
     Route: 058
     Dates: start: 20060214
  2. TMC114 [Suspect]
     Indication: HIV INFECTION
     Route: 048
     Dates: start: 20060214, end: 20060315
  3. NORVIR [Suspect]
     Indication: HIV INFECTION
     Route: 048
     Dates: start: 20060214, end: 20060315
  4. TRUVADA [Concomitant]
     Indication: HIV INFECTION
     Route: 048
     Dates: start: 20050215
  5. BACTRIM DS [Concomitant]
  6. NIFEDICAL [Concomitant]
     Indication: HYPERTENSION
     Dosage: REPORTED AS NIFEDICAL XL.

REACTIONS (4)
  - HAEMOLYTIC ANAEMIA [None]
  - IMMUNE RECONSTITUTION SYNDROME [None]
  - INFLUENZA LIKE ILLNESS [None]
  - THROMBOTIC THROMBOCYTOPENIC PURPURA [None]
